FAERS Safety Report 19429870 (Version 1)
Quarter: 2021Q2

REPORT INFORMATION
  Report Type: Spontaneous
  Country: ZA (occurrence: ZA)
  Receive Date: 20210617
  Receipt Date: 20210617
  Transmission Date: 20210717
  Serious: Yes (Disabling, Other)
  Sender: FDA-Public Use
  Company Number: ZA-SA-2021SA194662

PATIENT
  Sex: Female

DRUGS (6)
  1. SULFASALAZINE. [Suspect]
     Active Substance: SULFASALAZINE
     Dosage: 1 G
     Dates: start: 202001
  2. SALAZOPYRIN [Concomitant]
     Active Substance: SULFASALAZINE
     Dosage: UNK
  3. METHOTREXATE. [Suspect]
     Active Substance: METHOTREXATE
     Indication: PSORIASIS
     Dosage: UNK
  4. ARAVA [Suspect]
     Active Substance: LEFLUNOMIDE
     Dosage: UNK
  5. PREDNISONE. [Suspect]
     Active Substance: PREDNISONE
     Dosage: UNK
  6. CHLOROQUINE. [Suspect]
     Active Substance: CHLOROQUINE
     Dosage: UNK

REACTIONS (3)
  - Arthritis [Unknown]
  - Immobile [Unknown]
  - Drug ineffective [Unknown]
